FAERS Safety Report 5755972-X (Version None)
Quarter: 2008Q2

REPORT INFORMATION
  Report Type: 
  Country: None (occurrence: None)
  Receive Date: 20080528
  Receipt Date: 20080505
  Transmission Date: 20081010
  Serious: Yes (Hospitalization)
  Sender: FDA-Public Use
  Company Number: 200800048

PATIENT
  Age: 38 Year
  Sex: Male

DRUGS (1)
  1. SEPTOCAINE [Suspect]
     Indication: LOCAL ANAESTHESIA
     Dosage: PARENTERAL
     Route: 051

REACTIONS (5)
  - CEREBROVASCULAR ACCIDENT [None]
  - DRUG SCREEN POSITIVE [None]
  - DRUG TOXICITY [None]
  - DYSKINESIA [None]
  - HYPOAESTHESIA [None]
